FAERS Safety Report 26169436 (Version 1)
Quarter: 2025Q4

REPORT INFORMATION
  Report Type: Spontaneous
  Country: EU (occurrence: EU)
  Receive Date: 20251217
  Receipt Date: 20251217
  Transmission Date: 20260118
  Serious: Yes (Hospitalization)
  Sender: PFIZER
  Company Number: EU-SANDOZ-SDZ2025DE092363

PATIENT
  Sex: Female

DRUGS (10)
  1. METHOTREXATE SODIUM [Suspect]
     Active Substance: METHOTREXATE SODIUM
     Dosage: 20 MG
     Route: 058
     Dates: start: 20200909
  2. METHOTREXATE SODIUM [Suspect]
     Active Substance: METHOTREXATE SODIUM
     Dosage: 20 MG
     Route: 048
     Dates: start: 20200909, end: 20221011
  3. METHOTREXATE SODIUM [Suspect]
     Active Substance: METHOTREXATE SODIUM
     Dosage: 20 MG
     Route: 048
     Dates: start: 20221109, end: 20221109
  4. METHOTREXATE SODIUM [Suspect]
     Active Substance: METHOTREXATE SODIUM
     Dosage: 20 MG
     Route: 048
     Dates: start: 20221125, end: 20221209
  5. METHOTREXATE SODIUM [Suspect]
     Active Substance: METHOTREXATE SODIUM
     Dosage: 20 MG
     Route: 048
     Dates: start: 20221222
  6. METHOTREXATE SODIUM [Suspect]
     Active Substance: METHOTREXATE SODIUM
     Dosage: 15 MG
     Route: 048
     Dates: start: 20221222
  7. METHOTREXATE SODIUM [Suspect]
     Active Substance: METHOTREXATE SODIUM
     Dosage: 10 MG
     Route: 048
     Dates: start: 20221222, end: 20250123
  8. COSENTYX [Suspect]
     Active Substance: SECUKINUMAB
     Dosage: 150 MG
     Route: 065
     Dates: start: 20211221, end: 20220117
  9. COSENTYX [Suspect]
     Active Substance: SECUKINUMAB
     Dosage: 150 MG
     Route: 065
     Dates: start: 20220118
  10. CELECOXIB [Concomitant]
     Active Substance: CELECOXIB
     Dosage: 200 MG
     Route: 065
     Dates: start: 20250814

REACTIONS (1)
  - Osteoarthritis [Unknown]

NARRATIVE: CASE EVENT DATE: 20240926
